FAERS Safety Report 7509422-3 (Version None)
Quarter: 2011Q2

REPORT INFORMATION
  Report Type: 
  Country: None (occurrence: None)
  Receive Date: 20110527
  Receipt Date: 20110525
  Transmission Date: 20111010
  Serious: Yes (Other)
  Sender: FDA-Public Use
  Company Number: AU-ROCHE-778958

PATIENT
  Sex: Female

DRUGS (1)
  1. ACTEMRA [Suspect]
     Dosage: DOSE, ROUTE AND FREQUENCY WAS NOT REPORTED.
     Route: 065

REACTIONS (1)
  - CHEST PAIN [None]
